FAERS Safety Report 15806029 (Version 1)
Quarter: 2019Q1

REPORT INFORMATION
  Report Type: Report from Study
  Country: DE (occurrence: DE)
  Receive Date: 20190110
  Receipt Date: 20190110
  Transmission Date: 20190417
  Serious: Yes (Other)
  Sender: FDA-Public Use
  Company Number: DE-BAXTER-2019BAX000365

PATIENT
  Age: 78 Year
  Sex: Female
  Weight: 79.4 kg

DRUGS (21)
  1. NITRENDIPIN [Concomitant]
     Active Substance: NITRENDIPINE
     Indication: HYPERTENSION
     Dosage: 20 MG, UNK
     Route: 048
  2. ATORVASTATIN [Concomitant]
     Active Substance: ATORVASTATIN
     Indication: HYPERLIPIDAEMIA
     Dosage: UNK
     Route: 048
  3. DOXORUBICIN [Suspect]
     Active Substance: DOXORUBICIN
     Indication: DIFFUSE LARGE B-CELL LYMPHOMA
     Dosage: 70 MG, UNK
     Route: 041
     Dates: start: 20180918, end: 20180918
  4. PREDNISONE. [Suspect]
     Active Substance: PREDNISONE
     Indication: DIFFUSE LARGE B-CELL LYMPHOMA
     Dosage: 500 MG, UNK
     Route: 048
     Dates: start: 20181009, end: 20181013
  5. PREDNISONE. [Suspect]
     Active Substance: PREDNISONE
     Indication: PRODUCT USED FOR UNKNOWN INDICATION
     Dosage: 500 MG, UNK
     Route: 048
     Dates: start: 20181106, end: 20181110
  6. VINCRISTINE [Suspect]
     Active Substance: VINCRISTINE
     Indication: DIFFUSE LARGE B-CELL LYMPHOMA
     Dosage: 1 MG, UNK
     Route: 041
     Dates: start: 20181106, end: 20181106
  7. ENDOXAN 1G [Suspect]
     Active Substance: CYCLOPHOSPHAMIDE
     Indication: DIFFUSE LARGE B-CELL LYMPHOMA
     Dosage: 1060 MG, UNK
     Route: 041
     Dates: start: 20180918, end: 20180918
  8. PREDNISONE. [Suspect]
     Active Substance: PREDNISONE
     Dosage: 500 MG, UNK
     Route: 048
     Dates: start: 20180918, end: 20180922
  9. RIXIMYO [Suspect]
     Active Substance: RITUXIMAB
     Indication: PRODUCT USED FOR UNKNOWN INDICATION
     Dosage: 720 MG, UNK
     Route: 041
     Dates: start: 20181105
  10. BISOPROLOL [Concomitant]
     Active Substance: BISOPROLOL
     Indication: HYPERTENSION
     Dosage: 5 MG, UNK
     Route: 048
  11. LANTUS [Concomitant]
     Active Substance: INSULIN GLARGINE
     Indication: DIABETES MELLITUS
     Dosage: 6 I.E, UNK
     Route: 030
     Dates: start: 20181110
  12. ENDOXAN 1G [Suspect]
     Active Substance: CYCLOPHOSPHAMIDE
     Indication: PRODUCT USED FOR UNKNOWN INDICATION
     Dosage: 1080 MG, UNK
     Route: 041
     Dates: start: 20181106, end: 20181106
  13. VINCRISTINE [Suspect]
     Active Substance: VINCRISTINE
     Indication: PRODUCT USED FOR UNKNOWN INDICATION
     Dosage: 1 MG, UNK
     Route: 041
     Dates: start: 20180918, end: 20180918
  14. RIXIMYO [Suspect]
     Active Substance: RITUXIMAB
     Dosage: UNK
     Route: 041
     Dates: start: 20181008, end: 20181008
  15. ENDOXAN 1G [Suspect]
     Active Substance: CYCLOPHOSPHAMIDE
     Dosage: 1080 MG, UNK
     Route: 041
     Dates: start: 20181009, end: 20181009
  16. DOXORUBICIN [Suspect]
     Active Substance: DOXORUBICIN
     Indication: PRODUCT USED FOR UNKNOWN INDICATION
     Dosage: 70 MG, UNK
     Route: 041
     Dates: start: 20181108, end: 20181108
  17. VINCRISTINE [Suspect]
     Active Substance: VINCRISTINE
     Dosage: 1 MG, UNK
     Route: 041
     Dates: start: 20181009, end: 20181009
  18. RIXIMYO [Suspect]
     Active Substance: RITUXIMAB
     Indication: DIFFUSE LARGE B-CELL LYMPHOMA
     Dosage: 705 MG, UNK
     Route: 041
     Dates: start: 20180917, end: 20180917
  19. SITAGLIPTIN [Concomitant]
     Active Substance: SITAGLIPTIN
     Indication: DIABETES MELLITUS
     Dosage: 50 MG, UNK
     Route: 048
  20. DOXORUBICIN [Suspect]
     Active Substance: DOXORUBICIN
     Dosage: 70 MG, UNK
     Route: 041
     Dates: start: 20181009, end: 20181009
  21. IRBESARTAN AND HYDROCHLOROTHIAZIDE [Concomitant]
     Active Substance: HYDROCHLOROTHIAZIDE\IRBESARTAN
     Indication: HYPERTENSION
     Dosage: 150/12.5 MG
     Route: 048

REACTIONS (6)
  - Vomiting [Recovered/Resolved]
  - Nausea [Recovered/Resolved]
  - Blood immunoglobulin G decreased [Unknown]
  - Pulmonary embolism [Recovered/Resolved]
  - White blood cell count decreased [Recovered/Resolved]
  - White blood cell count decreased [Recovered/Resolved]

NARRATIVE: CASE EVENT DATE: 20181004
